FAERS Safety Report 19158260 (Version 1)
Quarter: 2021Q2

REPORT INFORMATION
  Report Type: Spontaneous
  Country: AU (occurrence: AU)
  Receive Date: 20210420
  Receipt Date: 20210420
  Transmission Date: 20210717
  Serious: Yes (Other)
  Sender: FDA-Public Use
  Company Number: AU-PFIZER INC-2021400912

PATIENT
  Age: 14 Year
  Sex: Male

DRUGS (3)
  1. DIPHENOXYLATE [Concomitant]
     Active Substance: DIPHENOXYLATE
     Dosage: UNK
  2. ERYTHROMYCIN. [Concomitant]
     Active Substance: ERYTHROMYCIN
     Dosage: UNK
  3. METRONIDAZOLE. [Suspect]
     Active Substance: METRONIDAZOLE
     Indication: DIARRHOEA HAEMORRHAGIC
     Dosage: 600 MG (14.3 MG/KG)
     Route: 048

REACTIONS (1)
  - Haemolytic uraemic syndrome [Unknown]

NARRATIVE: CASE EVENT DATE: 1987
